FAERS Safety Report 10898563 (Version 1)
Quarter: 2015Q1

REPORT INFORMATION
  Report Type: Spontaneous
  Country: US (occurrence: US)
  Receive Date: 20150309
  Receipt Date: 20150309
  Transmission Date: 20150721
  Serious: Yes (Hospitalization, Other)
  Sender: FDA-Public Use
  Company Number: US-ABBVIE-14P-163-1291494-00

PATIENT
  Age: 39 Year
  Sex: Female
  Weight: 131.21 kg

DRUGS (17)
  1. LUPRON DEPOT [Suspect]
     Active Substance: LEUPROLIDE ACETATE
     Route: 065
  2. LUPRON DEPOT [Suspect]
     Active Substance: LEUPROLIDE ACETATE
     Route: 065
     Dates: start: 201404
  3. BUPROPRION [Concomitant]
     Active Substance: BUPROPION
     Indication: DEPRESSION
  4. CLOBETASOL [Concomitant]
     Active Substance: CLOBETASOL
     Indication: ALOPECIA SCARRING
     Dosage: FORM OF ADMIN. SCALP SOLUTION
     Route: 061
  5. DULOXETINE [Concomitant]
     Active Substance: DULOXETINE
     Indication: DEPRESSION
  6. CRANBERRY. [Concomitant]
     Active Substance: CRANBERRY
     Indication: SUPPLEMENTATION THERAPY
  7. OMEPRAZOLE. [Concomitant]
     Active Substance: OMEPRAZOLE
     Indication: DYSPEPSIA
  8. ATORVASTATIN [Concomitant]
     Active Substance: ATORVASTATIN
     Indication: BLOOD CHOLESTEROL INCREASED
  9. GABAPENTIN. [Concomitant]
     Active Substance: GABAPENTIN
     Indication: FIBROMYALGIA
  10. LUPRON DEPOT [Suspect]
     Active Substance: LEUPROLIDE ACETATE
     Route: 065
  11. CAMILA [Concomitant]
     Active Substance: NORETHINDRONE
     Indication: CONTRACEPTION
  12. LISINOPRIL. [Concomitant]
     Active Substance: LISINOPRIL
     Indication: HYPERTENSION
  13. CEFADROXIL. [Concomitant]
     Active Substance: CEFADROXIL
     Indication: ALOPECIA SCARRING
  14. LORAZEPAM. [Concomitant]
     Active Substance: LORAZEPAM
     Indication: DEPRESSION
  15. LUPRON DEPOT [Suspect]
     Active Substance: LEUPROLIDE ACETATE
     Indication: ENDOMETRIOSIS
     Route: 065
  16. TRAZODONE [Concomitant]
     Active Substance: TRAZODONE HYDROCHLORIDE
     Indication: DEPRESSION
  17. STOOL SOFTNER [Concomitant]
     Indication: PRODUCT USED FOR UNKNOWN INDICATION

REACTIONS (7)
  - Hot flush [Recovered/Resolved]
  - Hot flush [Not Recovered/Not Resolved]
  - Weight increased [Not Recovered/Not Resolved]
  - Hyperhidrosis [Not Recovered/Not Resolved]
  - Endometriosis [Not Recovered/Not Resolved]
  - Pelvic pain [Not Recovered/Not Resolved]
  - Endometriosis [Not Recovered/Not Resolved]

NARRATIVE: CASE EVENT DATE: 201402
